FAERS Safety Report 9031436 (Version 1)
Quarter: 2013Q1

REPORT INFORMATION
  Report Type: Spontaneous
  Country: JP (occurrence: JP)
  Receive Date: 20130124
  Receipt Date: 20130124
  Transmission Date: 20140127
  Serious: Yes (Hospitalization)
  Sender: FDA-Public Use
  Company Number: JP-PFIZER INC-2013013126

PATIENT
  Age: 66 Year
  Sex: 0

DRUGS (1)
  1. MEDROL [Suspect]
     Dosage: 2 MG/DAY (A HALF TABLET OF 4 MG)
     Route: 048

REACTIONS (1)
  - Influenza [Unknown]
